FAERS Safety Report 6538296-2 (Version None)
Quarter: 2010Q1

REPORT INFORMATION
  Report Type: 
  Country: None (occurrence: None)
  Receive Date: 20100114
  Receipt Date: 20100107
  Transmission Date: 20100710
  Serious: Yes (Other)
  Sender: FDA-Public Use
  Company Number: DE-B.I. PHARMACEUTICALS,INC./RIDGEFIELD-2010-DE-00061DE

PATIENT
  Sex: Female
  Weight: 70 kg

DRUGS (4)
  1. SIFROL [Suspect]
     Indication: PARKINSON'S DISEASE
     Route: 048
  2. COMTESS [Suspect]
     Dosage: 20 ANZ
     Route: 048
  3. NACOM [Suspect]
     Dosage: 30 ANZ
     Route: 048
  4. TARGIN [Suspect]
     Dosage: 10 ANZ
     Route: 048

REACTIONS (5)
  - DRUG ABUSE [None]
  - HYPERKINESIA [None]
  - OVERDOSE [None]
  - RESTLESSNESS [None]
  - SUICIDE ATTEMPT [None]
